FAERS Safety Report 16931947 (Version 1)
Quarter: 2019Q4

REPORT INFORMATION
  Report Type: Spontaneous
  Country: DE (occurrence: DE)
  Receive Date: 20191017
  Receipt Date: 20191017
  Transmission Date: 20200122
  Serious: Yes (Hospitalization)
  Sender: FDA-Public Use
  Company Number: DE-BAUSCH-BL-2019-057270

PATIENT
  Age: 89 Year
  Sex: Female

DRUGS (14)
  1. QUETIAPINE. [Suspect]
     Active Substance: QUETIAPINE
     Route: 065
     Dates: start: 2016
  2. OXYCONTIN [Concomitant]
     Active Substance: OXYCODONE HYDROCHLORIDE
     Indication: SPONDYLITIS
     Dates: start: 201512
  3. LORAZEPANUM [Suspect]
     Active Substance: LORAZEPAM
     Indication: DEPRESSION
     Route: 065
  4. CIPRAMIL (CITALOPRAM HYDROBROMIDE) [Suspect]
     Active Substance: CITALOPRAM HYDROBROMIDE
     Indication: DEPRESSION
     Route: 065
  5. MIRTAZAPINE. [Suspect]
     Active Substance: MIRTAZAPINE
     Route: 065
     Dates: start: 2016
  6. MAGNESIUM [Concomitant]
     Active Substance: MAGNESIUM
     Indication: HYPOKALAEMIA
     Dates: start: 201512
  7. MIRTAZAPINE. [Suspect]
     Active Substance: MIRTAZAPINE
     Indication: DEPRESSION
     Route: 065
  8. QUETIAPINE. [Suspect]
     Active Substance: QUETIAPINE
     Indication: DEPRESSION
     Route: 065
     Dates: start: 201512
  9. CIPRAMIL (CITALOPRAM HYDROBROMIDE) [Suspect]
     Active Substance: CITALOPRAM HYDROBROMIDE
     Route: 065
  10. MONURIL [Concomitant]
     Active Substance: FOSFOMYCIN TROMETHAMINE
     Indication: ESCHERICHIA INFECTION
     Dosage: SINGLE DOSE OF 3 G
     Dates: start: 201512
  11. PETHIDINE [Concomitant]
     Active Substance: MEPERIDINE
     Indication: SPONDYLITIS
     Dosage: TOTAL QUANTITY WITHIN 24H, 400 - 800 MG
     Dates: start: 201512
  12. NOVALGIN [Concomitant]
     Indication: SPONDYLITIS
     Dosage: 2.5 G NOVAMIN SULFONE WITH 2-4 ML/H, TOTAL  QUANTITY WITHIN 24H, WAS 2.5 - 5 G
     Dates: start: 201512
  13. MYDOCALM (TOLPERISONE HYDROCHLORIDE) [Suspect]
     Active Substance: TOLPERISONE HYDROCHLORIDE
     Indication: SPONDYLITIS
     Route: 048
  14. DAFALGAN [Concomitant]
     Active Substance: ACETAMINOPHEN
     Indication: SPONDYLITIS
     Dates: start: 201512

REACTIONS (1)
  - Serotonin syndrome [Recovering/Resolving]
